FAERS Safety Report 9485737 (Version 2)
Quarter: 2013Q3

REPORT INFORMATION
  Report Type: Spontaneous
  Country: BE (occurrence: BE)
  Receive Date: 20130829
  Receipt Date: 20130917
  Transmission Date: 20140515
  Serious: Yes (Hospitalization)
  Sender: FDA-Public Use
  Company Number: BE-ROCHE-1267738

PATIENT
  Age: 26 Year
  Sex: Female
  Weight: 45 kg

DRUGS (2)
  1. MABTHERA [Suspect]
     Indication: OVERLAP SYNDROME
     Route: 042
     Dates: start: 20130812, end: 20130812
  2. MEDROL [Concomitant]
     Indication: OVERLAP SYNDROME
     Route: 048
     Dates: start: 20130903

REACTIONS (1)
  - Purpura [Recovered/Resolved]
